FAERS Safety Report 25047762 (Version 1)
Quarter: 2025Q1

REPORT INFORMATION
  Report Type: Spontaneous
  Country: BR (occurrence: BR)
  Receive Date: 20250306
  Receipt Date: 20250306
  Transmission Date: 20250409
  Serious: Yes (Other)
  Sender: MERCK SHARP & DOHME LLC
  Company Number: BR-009507513-2233446

PATIENT
  Sex: Female
  Weight: 89 kg

DRUGS (1)
  1. DEVICE [Suspect]
     Active Substance: DEVICE

REACTIONS (10)
  - Immunodeficiency [Unknown]
  - Sinusitis [Not Recovered/Not Resolved]
  - Influenza [Not Recovered/Not Resolved]
  - Fear [Unknown]
  - Anxiety disorder [Unknown]
  - Stress [Unknown]
  - Cough [Unknown]
  - Nasopharyngitis [Not Recovered/Not Resolved]
  - Candida infection [Unknown]
  - Immunodeficiency [Unknown]

NARRATIVE: CASE EVENT DATE: 20240101
